FAERS Safety Report 5359614-7 (Version None)
Quarter: 2007Q2

REPORT INFORMATION
  Report Type: 
  Country: None (occurrence: None)
  Receive Date: 20070530
  Receipt Date: 20061031
  Transmission Date: 20071010
  Serious: Yes (Other)
  Sender: FDA-Public Use
  Company Number: US200606002629

PATIENT
  Age: 66 Year
  Sex: Female
  Weight: 63.5 kg

DRUGS (3)
  1. ZYPREXA [Suspect]
     Dosage: 5 MG, 10 MG, 15 MG
     Dates: end: 20051001
  2. ZYPREXA [Suspect]
     Dosage: 5 MG, 10 MG, 15 MG
     Dates: start: 20030601
  3. LEXAPRO /USA/ (ESCITALOPRAM) [Concomitant]

REACTIONS (4)
  - BLOOD CHOLESTEROL ABNORMAL [None]
  - DIABETES MELLITUS [None]
  - DIABETIC KETOACIDOSIS [None]
  - METABOLIC DISORDER [None]
